FAERS Safety Report 4478192-8 (Version None)
Quarter: 2004Q4

REPORT INFORMATION
  Report Type: 
  Country: None (occurrence: None)
  Receive Date: 20041018
  Receipt Date: 20041018
  Transmission Date: 20050328
  Serious: Yes (Hospitalization)
  Sender: FDA-Public Use
  Company Number: None

PATIENT
  Age: 74 Year
  Sex: Male

DRUGS (2)
  1. LISINOPRIL [Suspect]
     Indication: HYPERTENSION
     Dosage: 20 MG QD
  2. IBUPROFEN [Suspect]
     Indication: GOUT
     Dosage: 800 MG TID

REACTIONS (2)
  - RENAL FAILURE ACUTE [None]
  - RENAL FAILURE CHRONIC [None]
